FAERS Safety Report 19274736 (Version 1)
Quarter: 2021Q2

REPORT INFORMATION
  Report Type: Spontaneous
  Country: FR (occurrence: FR)
  Receive Date: 20210519
  Receipt Date: 20210519
  Transmission Date: 20210717
  Serious: Yes (Life-Threatening, Hospitalization, Other)
  Sender: FDA-Public Use
  Company Number: FR-PFIZER INC-2021520763

PATIENT
  Age: 44 Year
  Sex: Female

DRUGS (4)
  1. QUETIAPINE MYLAN [Suspect]
     Active Substance: QUETIAPINE
     Indication: DEPRESSION
     Dosage: 300 MG, 1X/DAY (LAST 3?4 MONTHS (FIRST USE)
  2. SERTRALINE [Suspect]
     Active Substance: SERTRALINE HYDROCHLORIDE
     Dosage: UNK, IN THE MORNING
  3. LOXAPAC [LOXAPINE] [Suspect]
     Active Substance: LOXAPINE
     Dosage: UNK
  4. SERESTA [Suspect]
     Active Substance: OXAZEPAM
     Dosage: UNK

REACTIONS (10)
  - Dementia [Unknown]
  - Headache [Unknown]
  - Increased appetite [Unknown]
  - Condition aggravated [Unknown]
  - Weight increased [Unknown]
  - Suicidal behaviour [Unknown]
  - Constipation [Unknown]
  - Hallucination, auditory [Unknown]
  - Vision blurred [Unknown]
  - Soliloquy [Unknown]
